FAERS Safety Report 24078521 (Version 1)
Quarter: 2024Q3

REPORT INFORMATION
  Report Type: Spontaneous
  Country: US (occurrence: None)
  Receive Date: 20240710
  Receipt Date: 20240710
  Transmission Date: 20241017
  Serious: Yes (Other)
  Sender: Public
  Company Number: None

PATIENT
  Age: 77 Year
  Sex: Female

DRUGS (16)
  1. AMBRISENTAN [Suspect]
     Active Substance: AMBRISENTAN
     Indication: Pulmonary hypertension
     Dosage: FREQUENCY : DAILY;?
     Route: 048
     Dates: start: 20190501
  2. RENVELA [Concomitant]
     Active Substance: SEVELAMER CARBONATE
  3. ATORVASTATIN [Concomitant]
     Active Substance: ATORVASTATIN
  4. EPOGEN [Concomitant]
     Active Substance: ERYTHROPOIETIN
  5. LEVOTHYROXINE [Concomitant]
     Active Substance: LEVOTHYROXINE\LEVOTHYROXINE SODIUM
  6. ALVESCO HFA [Concomitant]
  7. STIOLTO RESPIMAT [Concomitant]
     Active Substance: OLODATEROL HYDROCHLORIDE\TIOTROPIUM BROMIDE MONOHYDRATE
  8. ALBUTEROL SULFATE [Concomitant]
     Active Substance: ALBUTEROL SULFATE
  9. TORSEMIDE [Concomitant]
     Active Substance: TORSEMIDE
  10. ASCORBIC ACID\BIOTIN\CALCIUM PANTOTHENATE\CYANOCOBALAMIN\FOLIC ACID\NI [Concomitant]
     Active Substance: ASCORBIC ACID\BIOTIN\CALCIUM PANTOTHENATE\CYANOCOBALAMIN\FOLIC ACID\NIACINAMIDE\PYRIDOXINE HYDROCHLO
  11. MIDODRINE [Concomitant]
     Active Substance: MIDODRINE
  12. ALLOPURINOL [Concomitant]
     Active Substance: ALLOPURINOL
  13. CINACALCET [Concomitant]
     Active Substance: CINACALCET
  14. EMLA TOP CREAM [Concomitant]
  15. CALCITRIOL [Concomitant]
     Active Substance: CALCITRIOL
  16. TUMS [Concomitant]
     Active Substance: CALCIUM CARBONATE

REACTIONS (3)
  - COVID-19 [None]
  - Dizziness [None]
  - Vertigo [None]

NARRATIVE: CASE EVENT DATE: 20240623
